FAERS Safety Report 7986076-3 (Version None)
Quarter: 2011Q4

REPORT INFORMATION
  Report Type: 
  Country: None (occurrence: None)
  Receive Date: 20111216
  Receipt Date: 20110119
  Transmission Date: 20120403
  Serious: No
  Sender: FDA-Public Use
  Company Number: US-BRISTOL-MYERS SQUIBB COMPANY-15498413

PATIENT
  Age: 12 Year
  Sex: Male

DRUGS (1)
  1. ABILIFY [Suspect]
     Dosage: 2MG TAKEN FOR ABOUT 2 MONTHS DOSE REDUCED TO 1MG

REACTIONS (2)
  - SOMNOLENCE [None]
  - ASPARTATE AMINOTRANSFERASE INCREASED [None]
